FAERS Safety Report 18618057 (Version 2)
Quarter: 2020Q4

REPORT INFORMATION
  Report Type: Report from Study
  Country: JP (occurrence: JP)
  Receive Date: 20201215
  Receipt Date: 20201218
  Transmission Date: 20210114
  Serious: Yes (Other)
  Sender: FDA-Public Use
  Company Number: JP-PFIZER INC-2016046364

PATIENT
  Age: 48 Year
  Sex: Female
  Weight: 38 kg

DRUGS (23)
  1. RAPALIMUS [Interacting]
     Active Substance: SIROLIMUS
     Dosage: 1 MG, ALTERNATE DAY(1 MG,2 D)
     Route: 048
     Dates: start: 20150120, end: 20150124
  2. PROGRAF [Concomitant]
     Active Substance: TACROLIMUS
     Indication: LYMPHANGIOLEIOMYOMATOSIS
     Dosage: 2 DF, 2X/DAY(2 DOSAGE FORMS,12 HR)
     Route: 048
  3. POTASSIUM L-ASPARTATE [Concomitant]
     Active Substance: POTASSIUM ASPARTATE ANHYDROUS
     Indication: PROPHYLAXIS
     Dosage: UNK
     Route: 048
  4. SODIUM FERROUS CITRATE [Concomitant]
     Active Substance: SODIUM FERROUS CITRATE
     Indication: PROPHYLAXIS
     Dosage: UNK
     Route: 048
     Dates: end: 20150821
  5. PREDNISOLONE. [Concomitant]
     Active Substance: PREDNISOLONE
     Indication: PROPHYLAXIS
     Dosage: 2 DF, DAILY(2 DOSAGE FORMS,1 D)
     Route: 048
  6. PREDONINE [Concomitant]
     Active Substance: PREDNISOLONE
     Indication: LYMPHANGIOLEIOMYOMATOSIS
     Dosage: UNK
     Route: 048
  7. BAKTAR [Concomitant]
     Active Substance: SULFAMETHOXAZOLE\TRIMETHOPRIM
     Indication: PROPHYLAXIS
     Dosage: 1 DF, DAILY(1 DOSAGE FORMS,1 D))
     Route: 048
  8. MUCOSAL-L [Concomitant]
     Indication: LYMPHANGIOLEIOMYOMATOSIS
     Dosage: UNK
     Route: 048
  9. MUCOSOLVAN [Concomitant]
     Active Substance: AMBROXOL HYDROCHLORIDE
     Indication: PROPHYLAXIS
     Dosage: 1 DF, DAILY(1 DOSAGE FORMS,1 D)
     Route: 048
  10. WARFARIN [Concomitant]
     Active Substance: WARFARIN
     Indication: PROPHYLAXIS
     Dosage: 1.5 MG, DAILY(1.5 MG,1 D)
     Route: 048
  11. LASIX [Concomitant]
     Active Substance: FUROSEMIDE
     Indication: PROPHYLAXIS
     Dosage: 2 DF, 2X/DAY(2 DOSAGE FORMS,12 HR)
     Route: 048
  12. RAPALIMUS [Interacting]
     Active Substance: SIROLIMUS
     Dosage: 1 MG, ALTERNATE DAY(1 MG,2 D)
     Route: 048
     Dates: start: 20150129
  13. ITRIZOLE [Interacting]
     Active Substance: ITRACONAZOLE
     Indication: PROPHYLAXIS
     Dosage: 50 MG, DAILY(50 MG,1 IN 1 D)
     Route: 048
     Dates: start: 20150106
  14. CELLCEPT [Concomitant]
     Active Substance: MYCOPHENOLATE MOFETIL\MYCOPHENOLATE MOFETIL HYDROCHLORIDE
     Indication: LYMPHANGIOLEIOMYOMATOSIS
     Dosage: 1 DF, DAILY(1 DOSAGE FORMS,1 D)
     Route: 048
  15. FUROSEMIDE. [Concomitant]
     Active Substance: FUROSEMIDE
     Indication: PROPHYLAXIS
     Dosage: UNK
     Route: 048
     Dates: end: 20161123
  16. EDIROL [Concomitant]
     Active Substance: ELDECALCITOL
     Indication: PROPHYLAXIS
     Dosage: UNK
     Route: 048
  17. PARIET [Concomitant]
     Active Substance: RABEPRAZOLE SODIUM
     Indication: PROPHYLAXIS
     Dosage: 1 DF, DAILY(1 DOSAGE FORMS,1 D)
     Route: 048
  18. MUCODYNE [Concomitant]
     Active Substance: CARBOCYSTEINE
     Indication: LYMPHANGIOLEIOMYOMATOSIS
     Dosage: UNK
     Route: 048
  19. BIO-THREE [Concomitant]
     Active Substance: HERBALS
     Indication: PROPHYLAXIS
     Dosage: 3 DF, 3X/DAY(3 DOSAGE FORMS,8 HR)
     Route: 048
  20. ETHYL ICOSAPENTATE [Concomitant]
     Active Substance: ICOSAPENT ETHYL
     Indication: PROPHYLAXIS
     Dosage: UNK
     Route: 048
     Dates: end: 20150120
  21. CELLCEPT [Concomitant]
     Active Substance: MYCOPHENOLATE MOFETIL\MYCOPHENOLATE MOFETIL HYDROCHLORIDE
     Indication: PROPHYLAXIS
  22. RAPALIMUS [Suspect]
     Active Substance: SIROLIMUS
     Indication: LYMPHANGIOLEIOMYOMATOSIS
     Dosage: 1 MG, DAILY(1 MG,1 D)
     Route: 048
     Dates: start: 20150115, end: 20150119
  23. ITRIZOLE [Interacting]
     Active Substance: ITRACONAZOLE
     Indication: ANTIFUNGAL PROPHYLAXIS

REACTIONS (2)
  - Drug interaction [Recovered/Resolved]
  - Drug level increased [Recovered/Resolved]

NARRATIVE: CASE EVENT DATE: 20150119
